FAERS Safety Report 5096025-6 (Version None)
Quarter: 2006Q3

REPORT INFORMATION
  Report Type: 
  Country: None (occurrence: None)
  Receive Date: 20060905
  Receipt Date: 20060830
  Transmission Date: 20061208
  Serious: Yes (Other)
  Sender: FDA-Public Use
  Company Number: 459198

PATIENT
  Age: 80 Year
  Sex: Male

DRUGS (4)
  1. DILATREND [Suspect]
     Dosage: 25MG PER DAY
     Route: 048
     Dates: start: 20051101
  2. BELOC-ZOK [Concomitant]
  3. DIGOXIN [Concomitant]
  4. NIZORAL [Concomitant]

REACTIONS (1)
  - PSORIASIS [None]
